FAERS Safety Report 8608295-5 (Version None)
Quarter: 2012Q3

REPORT INFORMATION
  Report Type: 
  Country: None (occurrence: None)
  Receive Date: 20120821
  Receipt Date: 20120814
  Transmission Date: 20120928
  Serious: No
  Sender: FDA-Public Use
  Company Number: MY-SANOFI-AVENTIS-2012SA050435

PATIENT
  Age: 35 Year
  Sex: Female
  Weight: 66 kg

DRUGS (3)
  1. CELEBREX [Concomitant]
     Dosage: STRENGTH: 200MG; AS NEEDED
     Route: 048
     Dates: start: 20080919, end: 20120710
  2. ARAVA [Suspect]
     Route: 048
     Dates: start: 20111109, end: 20120710
  3. LOVASTATIN [Concomitant]
     Indication: LIPIDS INCREASED
     Dosage: STRENGTH: 20MG
     Route: 048
     Dates: start: 20100919, end: 20120710

REACTIONS (1)
  - MATERNAL EXPOSURE DURING PREGNANCY [None]
